FAERS Safety Report 7486538-1 (Version None)
Quarter: 2011Q2

REPORT INFORMATION
  Report Type: 
  Country: None (occurrence: None)
  Receive Date: 20110516
  Receipt Date: 20110516
  Transmission Date: 20111010
  Serious: No
  Sender: FDA-Public Use
  Company Number: None

PATIENT
  Age: 15 Year
  Sex: Female
  Weight: 54.4316 kg

DRUGS (1)
  1. HALDOL [Suspect]
     Indication: MAJOR DEPRESSION
     Dosage: 5MG 1X PRN IM
     Route: 030
     Dates: start: 20110124

REACTIONS (2)
  - EXTRAPYRAMIDAL DISORDER [None]
  - TONGUE DISORDER [None]
